FAERS Safety Report 7023667-0 (Version None)
Quarter: 2010Q3

REPORT INFORMATION
  Report Type: 
  Country: None (occurrence: None)
  Receive Date: 20100929
  Receipt Date: 20100929
  Transmission Date: 20110219
  Serious: Yes (Hospitalization)
  Sender: FDA-Public Use
  Company Number: None

PATIENT
  Sex: Male
  Weight: 80.7 kg

DRUGS (1)
  1. TAXOTERE [Suspect]
     Dosage: 117 MG

REACTIONS (2)
  - FEBRILE NEUTROPENIA [None]
  - MALAISE [None]
